APPROVED DRUG PRODUCT: RETROVIR
Active Ingredient: ZIDOVUDINE
Strength: 50MG/5ML
Dosage Form/Route: SOLUTION;ORAL
Application: N019910 | Product #001 | TE Code: AA
Applicant: VIIV HEALTHCARE CO
Approved: Sep 28, 1989 | RLD: Yes | RS: Yes | Type: RX